FAERS Safety Report 10174015 (Version 1)
Quarter: 2014Q2

REPORT INFORMATION
  Report Type: Spontaneous
  Country: US (occurrence: None)
  Receive Date: 20140514
  Receipt Date: 20140514
  Transmission Date: 20141212
  Serious: Yes (Hospitalization)
  Sender: FDA-Public Use
  Company Number: None

PATIENT
  Age: 58 Year
  Sex: Male

DRUGS (7)
  1. FUROSEMIDE [Suspect]
     Indication: PRODUCT USED FOR UNKNOWN INDICATION
     Route: 042
     Dates: start: 20140203, end: 20140308
  2. AMITRIPTYLINE [Concomitant]
  3. BISACODYL [Concomitant]
  4. DIPHENHYDRAMINE [Concomitant]
  5. HYDROMORPHONE [Concomitant]
  6. POTASSIUM CHLORIDE [Concomitant]
  7. TEMAZEPAM [Concomitant]

REACTIONS (4)
  - Bradycardia [None]
  - Hypotension [None]
  - Drug reaction with eosinophilia and systemic symptoms [None]
  - Tinea versicolour [None]
